FAERS Safety Report 10758643 (Version 1)
Quarter: 2015Q1

REPORT INFORMATION
  Report Type: Spontaneous
  Country: US (occurrence: None)
  Receive Date: 20150123
  Receipt Date: 20150123
  Transmission Date: 20150721
  Serious: No
  Sender: FDA-Public Use
  Company Number: 2014TUS008985

PATIENT
  Age: 58 Year
  Sex: Female

DRUGS (3)
  1. TYLENOL/000200001/ (PARACETAMOL) [Concomitant]
  2. ENTYVIO [Suspect]
     Active Substance: VEDOLIZUMAB
     Indication: PRODUCT USED FOR UNKNOWN INDICATION
     Dosage: 300 MG, 4.8 ML STERILE H2O IN 250ML NS, INTRAVENOUS
     Route: 042
     Dates: start: 20140904, end: 20140904
  3. BENADRYL/00000402/ (DIPHENHYDRAMINE HYDROCHLORIDE) [Concomitant]

REACTIONS (4)
  - Pruritus [None]
  - Vision blurred [None]
  - Arthralgia [None]
  - Rhinorrhoea [None]

NARRATIVE: CASE EVENT DATE: 20140905
